FAERS Safety Report 13524120 (Version 3)
Quarter: 2018Q2

REPORT INFORMATION
  Report Type: Spontaneous
  Country: US (occurrence: US)
  Receive Date: 20170508
  Receipt Date: 20180424
  Transmission Date: 20180711
  Serious: Yes (Other)
  Sender: FDA-Public Use
  Company Number: US-AKORN PHARMACEUTICALS-2017AKN00536

PATIENT
  Sex: Male
  Weight: 65.76 kg

DRUGS (3)
  1. MYORISAN [Suspect]
     Active Substance: ISOTRETINOIN
     Indication: ACNE
     Dosage: 40 MG, 1X/DAY
     Route: 048
     Dates: start: 20170421, end: 20170521
  2. ZENATANE [Suspect]
     Active Substance: ISOTRETINOIN
     Indication: ACNE
     Dosage: 40 MG, 1X/DAY
     Route: 048
     Dates: start: 20161109, end: 20170521
  3. CLARAVIS [Suspect]
     Active Substance: ISOTRETINOIN
     Indication: ACNE
     Dosage: UNK
     Dates: start: 20170307, end: 20170521

REACTIONS (12)
  - Lip haemorrhage [Recovered/Resolved]
  - Acne [Not Recovered/Not Resolved]
  - Chapped lips [Unknown]
  - Rash [Recovered/Resolved]
  - Epistaxis [Recovered/Resolved]
  - Scab [Unknown]
  - Unevaluable event [Unknown]
  - Dry skin [Unknown]
  - Fear [Not Recovered/Not Resolved]
  - Skin exfoliation [Unknown]
  - Lip dry [Unknown]
  - Therapy cessation [Unknown]

NARRATIVE: CASE EVENT DATE: 2017
